FAERS Safety Report 20936792 (Version 2)
Quarter: 2022Q3

REPORT INFORMATION
  Report Type: Report from Study
  Country: CA (occurrence: CA)
  Receive Date: 20220609
  Receipt Date: 20220902
  Transmission Date: 20221027
  Serious: Yes (Other)
  Sender: FDA-Public Use
  Company Number: CA-BRISTOL-MYERS SQUIBB COMPANY-2022-014743

PATIENT
  Age: 64 Year
  Sex: Female

DRUGS (3)
  1. ZEPOSIA [Suspect]
     Active Substance: OZANIMOD HYDROCHLORIDE
     Indication: Relapsing multiple sclerosis
     Dosage: DAILY
     Route: 065
     Dates: start: 20220430, end: 20220506
  2. ZEPOSIA [Suspect]
     Active Substance: OZANIMOD HYDROCHLORIDE
     Route: 065
     Dates: start: 20220215
  3. ZEPOSIA [Suspect]
     Active Substance: OZANIMOD HYDROCHLORIDE
     Dosage: 0.93 (UNKNOWN UNIT) DAILY
     Route: 065
     Dates: start: 20220407

REACTIONS (11)
  - Loss of consciousness [Recovering/Resolving]
  - Blindness [Unknown]
  - Cardiac disorder [Unknown]
  - Hordeolum [Unknown]
  - Headache [Unknown]
  - Dizziness [Recovering/Resolving]
  - Nausea [Unknown]
  - Hypotension [Recovered/Resolved]
  - Asthenia [Recovering/Resolving]
  - Vomiting [Unknown]
  - Blood pressure increased [Not Recovered/Not Resolved]

NARRATIVE: CASE EVENT DATE: 20220323
